FAERS Safety Report 9992695 (Version 2)
Quarter: 2014Q2

REPORT INFORMATION
  Report Type: Spontaneous
  Country: BR (occurrence: BR)
  Receive Date: 20140310
  Receipt Date: 20140401
  Transmission Date: 20141212
  Serious: Yes (Disabling)
  Sender: FDA-Public Use
  Company Number: BR-009507513-1403BRA003804

PATIENT
  Age: 67 Year
  Sex: Female
  Weight: 39 kg

DRUGS (4)
  1. PEGINTRON [Suspect]
     Indication: HEPATITIS C
     Dosage: 80 MICROGRAM, QW
     Route: 058
     Dates: start: 20130919, end: 20140228
  2. RIBAVIRIN (NON-MERCK) [Concomitant]
     Indication: HEPATITIS C
     Dosage: UNK
     Dates: start: 20130915, end: 20140301
  3. OMEPRAZOLE [Concomitant]
     Indication: GASTRITIS
     Dosage: 1 DF, QD
     Dates: start: 2009
  4. PROPRANOLOL HYDROCHLORIDE [Concomitant]
     Indication: BLOOD PRESSURE INCREASED
     Dosage: 50 MG, QD

REACTIONS (30)
  - Dysstasia [Unknown]
  - Feeling abnormal [Unknown]
  - Pyrexia [Recovered/Resolved]
  - Chills [Unknown]
  - Bone pain [Recovering/Resolving]
  - Pain in extremity [Recovering/Resolving]
  - Headache [Recovering/Resolving]
  - Neck pain [Recovering/Resolving]
  - Myalgia [Recovering/Resolving]
  - Eye pain [Not Recovered/Not Resolved]
  - Asthenopia [Recovered/Resolved]
  - Eye irritation [Recovering/Resolving]
  - Aphthous stomatitis [Recovered/Resolved]
  - Oral pain [Recovered/Resolved]
  - Hypoaesthesia oral [Not Recovered/Not Resolved]
  - Ageusia [Not Recovered/Not Resolved]
  - Tongue discolouration [Not Recovered/Not Resolved]
  - Lip haemorrhage [Not Recovered/Not Resolved]
  - Lip pain [Not Recovered/Not Resolved]
  - Pallor [Recovering/Resolving]
  - Blister [Recovered/Resolved]
  - Pruritus generalised [Recovering/Resolving]
  - Platelet count decreased [Unknown]
  - Haemoglobin decreased [Unknown]
  - Thyroid disorder [Unknown]
  - Lymphadenitis bacterial [Recovering/Resolving]
  - Pain [Recovered/Resolved]
  - Erythema [Recovered/Resolved]
  - Alopecia [Not Recovered/Not Resolved]
  - Weight decreased [Not Recovered/Not Resolved]
